FAERS Safety Report 11008119 (Version 1)
Quarter: 2015Q2

REPORT INFORMATION
  Report Type: Report from Study
  Country: CN (occurrence: CN)
  Receive Date: 20150410
  Receipt Date: 20150410
  Transmission Date: 20150821
  Serious: Yes (Death)
  Sender: FDA-Public Use
  Company Number: CN-ASTRAZENECA-2015SE32693

PATIENT
  Age: 72 Year
  Sex: Female

DRUGS (2)
  1. BYETTA [Suspect]
     Active Substance: EXENATIDE
     Route: 065
     Dates: start: 20150120
  2. BYETTA [Suspect]
     Active Substance: EXENATIDE
     Route: 065
     Dates: start: 201502

REACTIONS (1)
  - Death [Fatal]
